FAERS Safety Report 8623567-6 (Version None)
Quarter: 2012Q3

REPORT INFORMATION
  Report Type: 
  Country: None (occurrence: None)
  Receive Date: 20120827
  Receipt Date: 20120814
  Transmission Date: 20120928
  Serious: Yes (Disabling)
  Sender: FDA-Public Use
  Company Number: FR-INCYTE CORPORATION-2012IN000698

PATIENT
  Sex: Female
  Weight: 61 kg

DRUGS (8)
  1. EPREX [Concomitant]
     Dosage: UNK
     Dates: start: 20120306
  2. ASPIRIN [Concomitant]
  3. SURMONTIL [Concomitant]
  4. TEMAZEPAM [Concomitant]
  5. INCB018424 [Suspect]
     Dosage: 10-15 MG, QD
     Route: 065
     Dates: start: 20120125, end: 20120710
  6. NEO-MERCAZOLE TAB [Concomitant]
  7. INCB018424 [Suspect]
     Indication: MYELOFIBROSIS
     Dosage: 15 MG, BID
     Route: 048
     Dates: start: 20111222
  8. CHLOROQUINE PHOSPHATE [Concomitant]

REACTIONS (2)
  - AXONAL NEUROPATHY [None]
  - DYSAESTHESIA [None]
